FAERS Safety Report 5820342-2 (Version None)
Quarter: 2008Q3

REPORT INFORMATION
  Report Type: 
  Country: None (occurrence: None)
  Receive Date: 20080724
  Receipt Date: 20070611
  Transmission Date: 20090109
  Serious: No
  Sender: FDA-Public Use
  Company Number: A0655029A

PATIENT
  Age: 74 Year
  Sex: Male

DRUGS (7)
  1. AVANDIA [Suspect]
     Dosage: 4MG TWICE PER DAY
     Route: 048
  2. PRECOSE [Concomitant]
  3. GLYBURIDE [Concomitant]
  4. LISINOPRIL [Concomitant]
  5. ASPIRIN [Concomitant]
  6. DIGOXIN [Concomitant]
  7. SIMVASTATIN [Concomitant]

REACTIONS (1)
  - BLOOD GLUCOSE DECREASED [None]
